FAERS Safety Report 17556705 (Version 1)
Quarter: 2020Q1

REPORT INFORMATION
  Report Type: Spontaneous
  Country: US (occurrence: US)
  Receive Date: 20200311
  Receipt Date: 20200311
  Transmission Date: 20200409
  Serious: No
  Sender: FDA-Public Use
  Company Number: None

PATIENT
  Age: 65 Year
  Sex: Female

DRUGS (1)
  1. SILDENAFIL 10MG/ML PW SUS(112ML) [Suspect]
     Active Substance: SILDENAFIL
     Dosage: ?          OTHER DOSE:2;OTHER ROUTE:UNKNOWN?
     Dates: start: 201912

REACTIONS (1)
  - Product dispensing issue [None]

NARRATIVE: CASE EVENT DATE: 20200219
